FAERS Safety Report 7906689-4 (Version None)
Quarter: 2011Q4

REPORT INFORMATION
  Report Type: 
  Country: None (occurrence: None)
  Receive Date: 20111110
  Receipt Date: 20111103
  Transmission Date: 20120403
  Serious: Yes (Hospitalization)
  Sender: FDA-Public Use
  Company Number: US-JNJFOC-20111102939

PATIENT
  Sex: Female
  Weight: 97.8 kg

DRUGS (35)
  1. DOXORUBICIN HCL [Suspect]
     Indication: MULTIPLE MYELOMA
     Route: 042
  2. CYTOXAN [Suspect]
     Indication: MULTIPLE MYELOMA
     Route: 042
  3. CYTOXAN [Suspect]
     Route: 042
     Dates: start: 20110815
  4. VELCADE [Suspect]
     Indication: MULTIPLE MYELOMA
     Route: 042
     Dates: start: 20110815
  5. COMPAZINE [Concomitant]
     Indication: VOMITING
     Route: 048
  6. ALPHA LIPOIC ACID [Concomitant]
     Route: 048
  7. DICLOFENAC SODIUM [Concomitant]
     Route: 061
  8. OTHER THERAPEUTIC PRODUCT [Concomitant]
     Route: 058
  9. DEXAMETHASONE [Suspect]
     Indication: MULTIPLE MYELOMA
     Route: 048
     Dates: start: 20111024
  10. ACYCLOVIR [Concomitant]
     Route: 048
  11. CYTOXAN [Suspect]
     Route: 042
     Dates: start: 20111024
  12. LEVAQUIN [Concomitant]
     Route: 048
  13. XANAX [Concomitant]
     Indication: ANXIETY
     Route: 061
  14. DEXAMETHASONE [Suspect]
     Route: 048
  15. HYDROMORPHONE HCL [Concomitant]
     Route: 048
  16. FLUCONAZOLE [Concomitant]
     Route: 048
  17. TRAMADOL HCL [Concomitant]
     Route: 048
  18. VELCADE [Suspect]
     Route: 042
     Dates: start: 20111024
  19. CLONAZEPAM [Concomitant]
     Indication: ANXIETY
     Route: 048
  20. COMPAZINE [Concomitant]
     Indication: NAUSEA
     Route: 048
  21. NAMENDA [Concomitant]
     Route: 048
  22. DOXORUBICIN HCL [Suspect]
     Route: 042
     Dates: start: 20111024
  23. DEXAMETHASONE [Suspect]
     Route: 048
     Dates: start: 20110815
  24. DEXLANSOPRAZOLE [Concomitant]
     Route: 048
  25. IMITREX [Concomitant]
     Indication: MIGRAINE
     Route: 048
  26. VITAMIN B COMPLEX CAP [Concomitant]
     Route: 048
  27. VITAMINE E [Concomitant]
     Route: 048
  28. OTHER THERAPEUTIC PRODUCT [Concomitant]
     Route: 065
  29. DOXORUBICIN HCL [Suspect]
     Route: 042
     Dates: start: 20110815
  30. VELCADE [Suspect]
     Route: 042
  31. FOLIC ACID [Concomitant]
     Route: 048
  32. MIRALAX [Concomitant]
     Indication: CONSTIPATION
     Route: 048
  33. MULTI-VITAMINS [Concomitant]
     Route: 048
  34. VERAPAMIL [Concomitant]
     Route: 048
  35. VITAMIN D [Concomitant]
     Route: 048

REACTIONS (2)
  - DEEP VEIN THROMBOSIS [None]
  - PULMONARY EMBOLISM [None]
